FAERS Safety Report 5498153-X (Version None)
Quarter: 2007Q4

REPORT INFORMATION
  Report Type: 
  Country: None (occurrence: None)
  Receive Date: 20071025
  Receipt Date: 20071018
  Transmission Date: 20080405
  Serious: Yes (Death, Other)
  Sender: FDA-Public Use
  Company Number: DK-ABBOTT-07P-044-0420026-00

PATIENT
  Sex: Male

DRUGS (2)
  1. SEVORANE LIQUID FOR INHALATION [Suspect]
     Indication: ANAESTHESIA
     Route: 055
     Dates: start: 20070518, end: 20070518
  2. MEBEVERINE HYDROCHLORIDE [Concomitant]
     Indication: DIVERTICULITIS
     Dates: start: 20070423

REACTIONS (7)
  - DISSEMINATED INTRAVASCULAR COAGULATION [None]
  - HEPATIC NECROSIS [None]
  - LUNG INFILTRATION [None]
  - PAIN [None]
  - RESPIRATORY ACIDOSIS [None]
  - RESPIRATORY DISORDER [None]
  - SEPTIC SHOCK [None]
